FAERS Safety Report 8563706-9 (Version None)
Quarter: 2012Q3

REPORT INFORMATION
  Report Type: 
  Country: None (occurrence: None)
  Receive Date: 20120803
  Receipt Date: 20120724
  Transmission Date: 20120928
  Serious: No
  Sender: FDA-Public Use
  Company Number: US-BIOGENIDEC-2010BI027723

PATIENT
  Sex: Female

DRUGS (1)
  1. AVONEX [Suspect]
     Indication: MULTIPLE SCLEROSIS
     Route: 030
     Dates: start: 20090424

REACTIONS (6)
  - SUICIDAL IDEATION [None]
  - INSOMNIA [None]
  - CRYING [None]
  - DEPRESSION [None]
  - TREMOR [None]
  - DEPRESSED MOOD [None]
